FAERS Safety Report 15510235 (Version 1)
Quarter: 2018Q4

REPORT INFORMATION
  Report Type: Spontaneous
  Country: US (occurrence: US)
  Receive Date: 20181017
  Receipt Date: 20181017
  Transmission Date: 20190205
  Serious: Yes (Life-Threatening)
  Sender: FDA-Public Use
  Company Number: None

PATIENT
  Age: 65 Year
  Sex: Male
  Weight: 103.5 kg

DRUGS (4)
  1. ACTOVAIC [Concomitant]
  2. AMILDONIE [Concomitant]
  3. ATTENOL [Concomitant]
  4. LISINOPRIL 40 MG [Suspect]
     Active Substance: LISINOPRIL
     Indication: HYPERTENSION
     Dosage: ?          QUANTITY:1 TABLET(S);?
     Route: 048
     Dates: end: 20181017

REACTIONS (3)
  - Drug ineffective [None]
  - Therapy change [None]
  - Product complaint [None]

NARRATIVE: CASE EVENT DATE: 20181002
